FAERS Safety Report 17572238 (Version 14)
Quarter: 2025Q3

REPORT INFORMATION
  Report Type: Spontaneous
  Country: EU (occurrence: EU)
  Receive Date: 20200323
  Receipt Date: 20250923
  Transmission Date: 20251020
  Serious: Yes (Death, Disabling, Other)
  Sender: Haleon PLC
  Company Number: EU-002147023-NVSC2020PL071878

PATIENT
  Age: 61 Year
  Sex: Male

DRUGS (73)
  1. ACETAMINOPHEN [Suspect]
     Active Substance: ACETAMINOPHEN
     Indication: Pain
  2. FENTANYL [Suspect]
     Active Substance: FENTANYL
     Indication: Cancer pain
  3. FENTANYL [Suspect]
     Active Substance: FENTANYL
     Indication: Pain
     Dosage: 200 UG, 3 TO 4 TIMES A DAY, DOSE FORM: TRANSDERMAL PATCH??FIRST ADMIN DATE: 2016?LAST ADMIN DATE:...
     Route: 062
  4. FENTANYL [Suspect]
     Active Substance: FENTANYL
     Dosage: 200 UG, QH
  5. FENTANYL [Suspect]
     Active Substance: FENTANYL
     Dosage: 50 ?G (Q72H)?FIRST ADMIN DATE: 2016-03?LAST ADMIN DATE: 2016
     Route: 062
  6. FENTANYL [Suspect]
     Active Substance: FENTANYL
     Dosage: 50 ?G (QH)?FIRST ADMIN DATE: 2016?LAST ADMIN DATE: 2016
     Route: 062
  7. FENTANYL [Suspect]
     Active Substance: FENTANYL
     Dosage: 50 MICROGRAM, Q1HR?FIRST ADMIN DATE: 2016?LAST ADMIN DATE: 2016
     Route: 062
  8. FENTANYL [Suspect]
     Active Substance: FENTANYL
     Route: 062
  9. FENTANYL [Suspect]
     Active Substance: FENTANYL
  10. FENTANYL [Suspect]
     Active Substance: FENTANYL
     Route: 048
  11. METAMIZOLE [Concomitant]
     Active Substance: METAMIZOLE
     Indication: Product used for unknown indication
     Dosage: 2 DF, UP TO 4 TIMES PER DAY?PATIENT ROA: UNKNOWN
  12. METAMIZOLE [Concomitant]
     Active Substance: METAMIZOLE
  13. BICALUTAMIDE [Suspect]
     Active Substance: BICALUTAMIDE
     Indication: Prostate cancer
     Dosage: 50 MILLIGRAM, QD?FIRST ADMIN DATE: 2016-03?PATIENT ROA: UNKNOWN
  14. ABIRATERONE ACETATE [Concomitant]
     Active Substance: ABIRATERONE ACETATE
     Indication: Product used for unknown indication
  15. ACETAMINOPHEN\TRAMADOL [Suspect]
     Active Substance: ACETAMINOPHEN\TRAMADOL
     Indication: Analgesic therapy
  16. ACETAMINOPHEN\TRAMADOL [Suspect]
     Active Substance: ACETAMINOPHEN\TRAMADOL
  17. ACETAMINOPHEN\TRAMADOL [Suspect]
     Active Substance: ACETAMINOPHEN\TRAMADOL
  18. DOCETAXEL [Suspect]
     Active Substance: DOCETAXEL
     Indication: Chemotherapy
  19. DOCETAXEL [Suspect]
     Active Substance: DOCETAXEL
     Indication: Hormone-refractory prostate cancer
  20. DOCETAXEL [Suspect]
     Active Substance: DOCETAXEL
     Indication: Prostate cancer
  21. DENOSUMAB [Suspect]
     Active Substance: DENOSUMAB
     Indication: Prostate cancer
     Dosage: 120 MG (EVERY 28 DAYS)?FIRST ADMIN DATE: 2016-03
     Route: 058
  22. PREGABALIN [Concomitant]
     Active Substance: PREGABALIN
     Indication: Polyneuropathy
  23. PREGABALIN [Concomitant]
     Active Substance: PREGABALIN
     Indication: Product used for unknown indication
     Dosage: 0.075 G, 2X PER DAY, (1-0-1)?PATIENT ROA:UNKNOWN
  24. PREGABALIN [Concomitant]
     Active Substance: PREGABALIN
     Dosage: 0.15 G, BID?PATIENT ROA:UNKNOWN
  25. NIMESULIDE [Concomitant]
     Active Substance: NIMESULIDE
     Indication: Product used for unknown indication
  26. NIMESULIDE [Concomitant]
     Active Substance: NIMESULIDE
     Dosage: UNK UNK, BID (1-0-1)
  27. KETOPROFEN [Suspect]
     Active Substance: KETOPROFEN
     Indication: Pain
     Dosage: 100 MG, BID?FIRST ADMIN DATE: 2016-03?PATIENT ROA: UNKNOWN
  28. KETOPROFEN [Suspect]
     Active Substance: KETOPROFEN
     Dosage: 200 MG, QD?FIRST ADMIN DATE: 2016-05?PATIENT ROA: UNKNOWN
  29. GABAPENTIN [Suspect]
     Active Substance: GABAPENTIN
     Indication: Pain
     Dosage: 900 MG?PATIENT ROA: UNKNOWN
  30. GABAPENTIN [Suspect]
     Active Substance: GABAPENTIN
     Dosage: 150 MILLIGRAM, QD?PATIENT ROA: UNKNOWN
  31. GABAPENTIN [Suspect]
     Active Substance: GABAPENTIN
     Dosage: 0.3 GRAM, TID, IS CONTINUED IN 2016 START: 2016-03 AND LAST ADMIN DATE: 2016?PATIENT ROA: UNKNOWN
  32. GABAPENTIN [Suspect]
     Active Substance: GABAPENTIN
  33. IRON [Concomitant]
     Active Substance: IRON
     Indication: Product used for unknown indication
  34. IRON [Concomitant]
     Active Substance: IRON
  35. IRON [Concomitant]
     Active Substance: IRON
  36. IRON [Concomitant]
     Active Substance: IRON
  37. IRON [Concomitant]
     Active Substance: IRON
  38. MORPHINE SULFATE [Suspect]
     Active Substance: MORPHINE SULFATE
     Indication: Cancer pain
     Dosage: 0.02 G, 4X PER DAY, (FAST-RELEASE )?FIRST ADMIN DATE: 2016-03
     Route: 048
  39. MORPHINE SULFATE [Suspect]
     Active Substance: MORPHINE SULFATE
     Indication: Pain
     Dosage: 0.02 G, QID (FAST-RELEASE)?FIRST ADMIN DATE: 2016-03
     Route: 048
  40. MORPHINE SULFATE [Suspect]
     Active Substance: MORPHINE SULFATE
     Route: 048
  41. DEXKETOPROFEN [Concomitant]
     Active Substance: DEXKETOPROFEN
     Indication: Product used for unknown indication
     Dosage: 1 DF, UP TO 3 TIMES PER DAY
  42. TRAMADOL [Suspect]
     Active Substance: TRAMADOL
     Indication: Pain
  43. FENTANYL [Suspect]
     Active Substance: FENTANYL
     Indication: Pain
     Dosage: 200 UG, QH
     Route: 062
  44. FENTANYL [Suspect]
     Active Substance: FENTANYL
     Indication: Cancer pain
     Dosage: 50 MICROGRAM, Q72H
     Route: 062
  45. FENTANYL [Suspect]
     Active Substance: FENTANYL
     Dosage: 50 MICROGRAM?FIRST ADMIN DATE: 2016-03?LAST ADMIN DATE: 2016
     Route: 062
  46. FENTANYL [Suspect]
     Active Substance: FENTANYL
     Dosage: 200 MICROGRAM, Q1HR?FIRST ADMIN DATE: 2016?LAST ADMIN DATE: 2016
     Route: 062
  47. FENTANYL [Suspect]
     Active Substance: FENTANYL
     Dosage: 50 MICROGRAM, Q1HR?FIRST ADMIN DATE: 2016?LAST ADMIN DATE: 2016
     Route: 062
  48. DICLOFENAC SODIUM [Suspect]
     Active Substance: DICLOFENAC SODIUM
     Indication: Pain
     Dosage: 100 MG, Q12H (100 MG, BID) ?START DATE: 2014-01
  49. VITAMIN D3 [Concomitant]
     Active Substance: CHOLECALCIFEROL
     Indication: Product used for unknown indication
     Dosage: 4000 INTERNATIONAL UNIT, QD?FIRST ADMIN DATE: 2016-03, ROA: ENDOCERVICAL
  50. MORPHINE [Concomitant]
     Active Substance: MORPHINE
     Indication: Pain
     Route: 048
  51. MORPHINE [Concomitant]
     Active Substance: MORPHINE
     Indication: Cancer pain
  52. LEUPROLIDE ACETATE [Suspect]
     Active Substance: LEUPROLIDE ACETATE
     Indication: Hormone therapy
     Dosage: UNK, EVERY SIX MONTHS, DOSE FORM: INJECTION
  53. TAPENTADOL HYDROCHLORIDE [Concomitant]
     Active Substance: TAPENTADOL HYDROCHLORIDE
     Indication: Polyneuropathy
     Dosage: 150 MILLIGRAM, QD
  54. TAPENTADOL HYDROCHLORIDE [Concomitant]
     Active Substance: TAPENTADOL HYDROCHLORIDE
     Dosage: 100 MILLIGRAM, QD
  55. TAPENTADOL HYDROCHLORIDE [Concomitant]
     Active Substance: TAPENTADOL HYDROCHLORIDE
     Dosage: 0.1 MG, QD (0.05 G, 2X PER DAY (SLOW-RELEASE)
  56. TAPENTADOL HYDROCHLORIDE [Concomitant]
     Active Substance: TAPENTADOL HYDROCHLORIDE
  57. TAPENTADOL HYDROCHLORIDE [Concomitant]
     Active Substance: TAPENTADOL HYDROCHLORIDE
  58. PREGABALIN [Concomitant]
     Active Substance: PREGABALIN
     Indication: Polyneuropathy
  59. ABIRATERONE [Concomitant]
     Active Substance: ABIRATERONE
     Indication: Product used for unknown indication
  60. LEUPROLIDE ACETATE [Suspect]
     Active Substance: LEUPROLIDE ACETATE
     Indication: Hormone therapy
     Dosage: UNK, EVERY SIX MONTHS, DOSE FORM: INJECTION
  61. LEUPROLIDE ACETATE [Suspect]
     Active Substance: LEUPROLIDE ACETATE
     Indication: Prostate cancer
     Dosage: UNK, Q3MO, ONCE IN 3 MONTHS OR EVERY SIX MONTHS, DOSE FORM: INJECTION
  62. LEUPROLIDE ACETATE [Suspect]
     Active Substance: LEUPROLIDE ACETATE
     Indication: Prostate cancer
  63. LEUPROLIDE ACETATE [Suspect]
     Active Substance: LEUPROLIDE ACETATE
     Indication: Hormone therapy
  64. LEUPROLIDE ACETATE [Suspect]
     Active Substance: LEUPROLIDE ACETATE
     Dosage: UNK, Q3MO, INJECTION?PATIENT ROA: UNKNOWN
  65. ACETAMINOPHEN\TRAMADOL [Suspect]
     Active Substance: ACETAMINOPHEN\TRAMADOL
     Indication: Analgesic therapy
  66. ACETAMINOPHEN\TRAMADOL [Suspect]
     Active Substance: ACETAMINOPHEN\TRAMADOL
  67. FENTANYL [Suspect]
     Active Substance: FENTANYL
     Indication: Cancer pain
  68. FENTANYL [Suspect]
     Active Substance: FENTANYL
     Route: 048
  69. TAPENTADOL [Concomitant]
     Active Substance: TAPENTADOL
     Indication: Polyneuropathy
     Dosage: 150 MILLIGRAM, QD
  70. TAPENTADOL [Concomitant]
     Active Substance: TAPENTADOL
     Dosage: 100 MILLIGRAM, QD
  71. TAPENTADOL [Concomitant]
     Active Substance: TAPENTADOL
     Dosage: 0.1 MG, QD (0.05 G, 2X PER DAY (SLOW-RELEASE)
  72. TAPENTADOL [Concomitant]
     Active Substance: TAPENTADOL
  73. TAPENTADOL [Concomitant]
     Active Substance: TAPENTADOL
     Indication: Polyneuropathy

REACTIONS (22)
  - Decreased appetite [Fatal]
  - Drug ineffective [Fatal]
  - Malignant neoplasm progression [Unknown]
  - Dermatitis allergic [Fatal]
  - Metastases to bone [Unknown]
  - Allodynia [Fatal]
  - Pain [Unknown]
  - Constipation [Fatal]
  - Neuropathy peripheral [Not Recovered/Not Resolved]
  - Polyneuropathy in malignant disease [Fatal]
  - Product use in unapproved indication [Unknown]
  - Polyneuropathy [Fatal]
  - Toxicity to various agents [Recovered/Resolved]
  - Anaemia [Unknown]
  - Hyperaesthesia [Recovered/Resolved]
  - Metastases to lung [Unknown]
  - Drug dependence [Unknown]
  - Chronic kidney disease [Fatal]
  - Confusional state [Fatal]
  - Quality of life decreased [Fatal]
  - Prostate cancer [Unknown]
  - Pulmonary embolism [Fatal]
